FAERS Safety Report 13312536 (Version 4)
Quarter: 2017Q2

REPORT INFORMATION
  Report Type: Spontaneous
  Country: RS (occurrence: RS)
  Receive Date: 20170309
  Receipt Date: 20170407
  Transmission Date: 20170830
  Serious: Yes (Other)
  Sender: FDA-Public Use
  Company Number: RS-ABBVIE-17P-303-1900612-00

PATIENT
  Age: 12 Year
  Sex: Male

DRUGS (2)
  1. EFTIL [Suspect]
     Active Substance: VALPROATE SODIUM
     Indication: EPILEPSY
     Route: 048
  2. EFTIL [Suspect]
     Active Substance: VALPROATE SODIUM
     Route: 048
     Dates: start: 20170213

REACTIONS (2)
  - Vomiting [Recovered/Resolved]
  - Generalised tonic-clonic seizure [Recovered/Resolved]

NARRATIVE: CASE EVENT DATE: 201702
